FAERS Safety Report 13098926 (Version 13)
Quarter: 2018Q1

REPORT INFORMATION
  Report Type: Spontaneous
  Country: JP (occurrence: JP)
  Receive Date: 20170109
  Receipt Date: 20180309
  Transmission Date: 20180508
  Serious: Yes (Hospitalization, Other)
  Sender: FDA-Public Use
  Company Number: JP-UNITED THERAPEUTICS-UNT-2016-018504

PATIENT
  Age: 49 Year
  Sex: Male
  Weight: 59 kg

DRUGS (5)
  1. REMODULIN [Suspect]
     Active Substance: TREPROSTINIL
     Indication: PULMONARY ARTERIAL HYPERTENSION
     Dosage: UNK
     Route: 058
     Dates: start: 20161125
  2. REVATIO [Concomitant]
     Active Substance: SILDENAFIL CITRATE
     Indication: PRODUCT USED FOR UNKNOWN INDICATION
     Dosage: 60 MG, UNK
     Route: 048
     Dates: start: 200808
  3. VOLIBRIS [Concomitant]
     Active Substance: AMBRISENTAN
     Indication: PRODUCT USED FOR UNKNOWN INDICATION
     Dosage: 10 MG, UNK
     Route: 048
     Dates: start: 201005
  4. ADCIRCA [Concomitant]
     Active Substance: TADALAFIL
     Indication: PRODUCT USED FOR UNKNOWN INDICATION
     Dosage: 40 MG, UNK
     Route: 048
     Dates: start: 201005
  5. TRAMAL [Suspect]
     Active Substance: TRAMADOL
     Indication: PRODUCT USED FOR UNKNOWN INDICATION
     Route: 048

REACTIONS (23)
  - Infusion site pain [Recovering/Resolving]
  - Dry mouth [Not Recovered/Not Resolved]
  - Swelling [Unknown]
  - Arthralgia [Not Recovered/Not Resolved]
  - Headache [Not Recovered/Not Resolved]
  - Infusion site erythema [Recovering/Resolving]
  - Drug dose omission [Unknown]
  - Device dislocation [Unknown]
  - Infusion site discharge [Unknown]
  - Heart rate increased [Unknown]
  - Vomiting [Unknown]
  - Nausea [Recovering/Resolving]
  - Deafness unilateral [Unknown]
  - Infusion site haemorrhage [Unknown]
  - Shock [Not Recovered/Not Resolved]
  - Platelet count decreased [Unknown]
  - Infusion site induration [Not Recovered/Not Resolved]
  - Diarrhoea [Unknown]
  - Infusion site infection [Unknown]
  - Pulmonary oedema [Unknown]
  - Flushing [Not Recovered/Not Resolved]
  - Dysgeusia [Unknown]
  - Hypoaesthesia [Not Recovered/Not Resolved]

NARRATIVE: CASE EVENT DATE: 201611
